FAERS Safety Report 17774936 (Version 1)
Quarter: 2020Q2

REPORT INFORMATION
  Report Type: Spontaneous
  Country: US (occurrence: US)
  Receive Date: 20200512
  Receipt Date: 20200512
  Transmission Date: 20200714
  Serious: Yes (Other)
  Sender: FDA-Public Use
  Company Number: None

PATIENT
  Age: 32 Year
  Sex: Female
  Weight: 72.45 kg

DRUGS (1)
  1. MEGESTROL [Suspect]
     Active Substance: MEGESTROL
     Indication: MENORRHAGIA
     Route: 048
     Dates: start: 20200325, end: 20200410

REACTIONS (2)
  - Ectopic pregnancy [None]
  - Maternal exposure timing unspecified [None]

NARRATIVE: CASE EVENT DATE: 20200417
